FAERS Safety Report 12623555 (Version 2)
Quarter: 2016Q3

REPORT INFORMATION
  Report Type: Report from Study
  Country: RO (occurrence: RO)
  Receive Date: 20160804
  Receipt Date: 20160812
  Transmission Date: 20161109
  Serious: Yes (Death, Hospitalization)
  Sender: FDA-Public Use
  Company Number: RO-ABBVIE-16K-135-1691599-00

PATIENT
  Age: 77 Year
  Sex: Male

DRUGS (10)
  1. EXELON [Concomitant]
     Active Substance: RIVASTIGMINE TARTRATE
     Indication: PRODUCT USED FOR UNKNOWN INDICATION
     Dosage: FREQUENCY: 1-0-0
     Dates: end: 20160801
  2. DEPAKINE [Concomitant]
     Active Substance: VALPROATE SODIUM
     Indication: PRODUCT USED FOR UNKNOWN INDICATION
     Dosage: FREQUENCY: 1-0-1
  3. NEUPRO [Concomitant]
     Active Substance: ROTIGOTINE
     Indication: PARKINSON^S DISEASE
     Dosage: FREQUENCY: 1-0-0
     Dates: end: 20160801
  4. TROMBOSTOP [Concomitant]
     Indication: PRODUCT USED FOR UNKNOWN INDICATION
     Dosage: FREQUENCY: 1-0-0
  5. DUODOPA [Suspect]
     Active Substance: CARBIDOPA\LEVODOPA
     Indication: PARKINSON^S DISEASE
     Dosage: 16/24: MD- 9 ML, CR- 2.9 ML, ED-1,5 ML
     Route: 050
     Dates: start: 20141218, end: 20160801
  6. ASPENTER [Suspect]
     Active Substance: ASPIRIN
     Indication: CEREBROVASCULAR ACCIDENT PROPHYLAXIS
     Route: 065
     Dates: start: 2013, end: 20160801
  7. MOTILIUM [Concomitant]
     Active Substance: DOMPERIDONE
     Indication: GASTROINTESTINAL MOTILITY DISORDER
     Dosage: FREQUENCY: 1-0-1, 10 MG
     Dates: end: 20160801
  8. SELEGOS [Concomitant]
     Indication: PARKINSON^S DISEASE
     Dosage: 5 MG
     Dates: end: 20160801
  9. DEPAKINE CHRONO [Concomitant]
     Active Substance: VALPROATE SODIUM
     Indication: EPILEPSY
     Dosage: 500 MG
     Dates: end: 20160801
  10. ASPENTER [Suspect]
     Active Substance: ASPIRIN
     Indication: CEREBROVASCULAR ACCIDENT PROPHYLAXIS

REACTIONS (10)
  - Apathy [Fatal]
  - General physical health deterioration [Fatal]
  - Gastrointestinal haemorrhage [Fatal]
  - Constipation [Fatal]
  - Upper gastrointestinal haemorrhage [Fatal]
  - Vomiting [Fatal]
  - Confusional state [Fatal]
  - Nausea [Fatal]
  - Cardio-respiratory arrest [Fatal]
  - Shock haemorrhagic [Fatal]

NARRATIVE: CASE EVENT DATE: 20160729
